FAERS Safety Report 13765340 (Version 2)
Quarter: 2017Q3

REPORT INFORMATION
  Report Type: Spontaneous
  Country: US (occurrence: US)
  Receive Date: 20170718
  Receipt Date: 20170724
  Transmission Date: 20171127
  Serious: No
  Sender: FDA-Public Use
  Company Number: US-009507513-1707USA002396

PATIENT
  Sex: Female

DRUGS (3)
  1. BELSOMRA [Suspect]
     Active Substance: SUVOREXANT
     Dosage: 10 MG, QD
     Route: 048
  2. BELSOMRA [Suspect]
     Active Substance: SUVOREXANT
     Dosage: 20 MG, QD
     Route: 048
  3. BELSOMRA [Suspect]
     Active Substance: SUVOREXANT
     Dosage: 15 MG, QD
     Route: 048

REACTIONS (3)
  - Circumstance or information capable of leading to medication error [Unknown]
  - Accidental overdose [Unknown]
  - No adverse event [Unknown]
